FAERS Safety Report 6028434-2 (Version None)
Quarter: 2009Q1

REPORT INFORMATION
  Report Type: 
  Country: None (occurrence: None)
  Receive Date: 20090106
  Receipt Date: 20081229
  Transmission Date: 20090719
  Serious: Yes (Other)
  Sender: FDA-Public Use
  Company Number: CL-ASTRAZENECA-2008UW27253

PATIENT
  Age: 43 Year
  Sex: Female

DRUGS (11)
  1. PROPOFOL [Suspect]
     Indication: ANAESTHESIA
     Dosage: 7 MG / KG / HOUR
     Route: 042
     Dates: start: 20060613
  2. PROPOFOL [Suspect]
     Indication: SEDATION
     Dosage: 7 MG / KG / HOUR
     Route: 042
     Dates: start: 20060613
  3. PROPOFOL [Suspect]
     Dosage: 3.5 MG / KG / HOUR
     Route: 042
     Dates: end: 20060614
  4. PROPOFOL [Suspect]
     Dosage: 3.5 MG / KG / HOUR
     Route: 042
     Dates: end: 20060614
  5. VALPROIC ACID [Concomitant]
     Indication: CONVULSION
  6. REMIFENTANIL [Concomitant]
     Dosage: 0.25 MH / KG / MIN
  7. LORAZEPAM [Concomitant]
     Indication: GRAND MAL CONVULSION
     Route: 042
  8. MIDAZOLAM [Concomitant]
     Indication: SEDATION
  9. MIDAZOLAM [Concomitant]
     Indication: ANAESTHESIA
  10. PHENTANYL [Concomitant]
     Indication: SEDATION
  11. PHENTANYL [Concomitant]
     Indication: ANAESTHESIA

REACTIONS (1)
  - LACTIC ACIDOSIS [None]
